FAERS Safety Report 19196141 (Version 1)
Quarter: 2021Q2

REPORT INFORMATION
  Report Type: Spontaneous
  Country: US (occurrence: US)
  Receive Date: 20210429
  Receipt Date: 20210429
  Transmission Date: 20210717
  Serious: Yes (Other)
  Sender: FDA-Public Use
  Company Number: US-FRESENIUS KABI-FK202104368

PATIENT
  Age: 54 Year
  Sex: Female

DRUGS (5)
  1. KETAMINE [Suspect]
     Active Substance: KETAMINE
     Route: 042
  2. PARACETAMOL (MANUFACTURER UNKNOWN) [Suspect]
     Active Substance: ACETAMINOPHEN
     Indication: PAIN
     Dosage: 6 GRAM PER DAY
     Route: 065
  3. KETAMINE [Suspect]
     Active Substance: KETAMINE
     Indication: COMPLEX REGIONAL PAIN SYNDROME
     Route: 042
  4. KETAMINE [Suspect]
     Active Substance: KETAMINE
     Route: 042
  5. KETAMINE [Suspect]
     Active Substance: KETAMINE
     Route: 042

REACTIONS (2)
  - Drug-induced liver injury [Recovering/Resolving]
  - Overdose [Unknown]
